FAERS Safety Report 24252292 (Version 2)
Quarter: 2024Q3

REPORT INFORMATION
  Report Type: Report from Study
  Country: PT (occurrence: PT)
  Receive Date: 20240827
  Receipt Date: 20240904
  Transmission Date: 20241016
  Serious: Yes (Death, Hospitalization, Other)
  Sender: ABBVIE
  Company Number: PT-ABBVIE-5893051

PATIENT
  Age: 76 Year
  Sex: Male

DRUGS (14)
  1. CARBIDOPA\LEVODOPA [Suspect]
     Active Substance: CARBIDOPA\LEVODOPA
     Indication: Parkinson^s disease
     Dosage: 20 MG + 5 MG?FREQUENCY TEXT: 16.5CC;MAINT:5.7CC/H;EXT:3.5CC
     Route: 050
     Dates: start: 2024, end: 202408
  2. CARBIDOPA\LEVODOPA [Suspect]
     Active Substance: CARBIDOPA\LEVODOPA
     Dosage: 20 MG + 5 MG?FREQUENCY TEXT: MORN:10CC;MAINT:4.3CC/H;EXT:2CC
     Route: 050
     Dates: start: 20220601
  3. WARFARIN [Concomitant]
     Active Substance: WARFARIN
     Indication: Product used for unknown indication
     Dosage: FORM STRENGTH: 5 MILLIGRAM?FREQUENCY TEXT: 1+ 1/2 TABLET ALTERNATING WITH 2 TABLETS?START DATE TE...
     Route: 048
  4. CLOZAPINE [Concomitant]
     Active Substance: CLOZAPINE
     Indication: Product used for unknown indication
     Dosage: 0.5 TABLET?FORM STRENGTH: 25 MILLIGRAM?FREQUENCY TEXT: AT BEDTIME?START DATE: BEFORE DUODOPA
     Route: 048
  5. MIDODRINE [Concomitant]
     Active Substance: MIDODRINE
     Indication: Product used for unknown indication
     Dosage: 4 TABLET?FREQUENCY: 3 TABL IN THE MORNING + 1 TAB AT LUNCH
     Dates: start: 202305
  6. METFORMIN PAMOATE [Concomitant]
     Active Substance: METFORMIN PAMOATE
     Indication: Product used for unknown indication
     Dosage: 2 TABLET?FORM STRENGTH: 700 MILLIGRAM?START DATE: BEFORE DUODOPA
     Route: 048
  7. CLONAZEPAM [Concomitant]
     Active Substance: CLONAZEPAM
     Indication: Product used for unknown indication
     Dosage: 1 TABLET?FORM STRENGTH: 0.5 MILLIGRAM?FREQUENCY TEXT:  AT BEDTIME?START DATE: BEFORE DUODOPA
     Route: 048
  8. GABAPENTIN [Concomitant]
     Active Substance: GABAPENTIN
     Indication: Product used for unknown indication
     Dosage: 300?2 TABLET?START DATE :BEFORE DUODOPA
     Route: 048
  9. BENSERAZIDE HYDROCHLORIDE\LEVODOPA [Concomitant]
     Active Substance: BENSERAZIDE HYDROCHLORIDE\LEVODOPA
     Indication: Product used for unknown indication
     Dosage: 2 TABLET?FREQUENCY: AT BEDTIME?START DATE: BEFORE DUODOPA
     Route: 048
  10. TRAZODONE [Concomitant]
     Active Substance: TRAZODONE HYDROCHLORIDE
     Indication: Product used for unknown indication
     Dosage: 1 TABLET?FORM STRENGTH: 150 MILLIGRAM?FREQUENCY: AT BEDTIME?START DATE: BEFORE DUODOPA
     Route: 048
  11. AUGMENTIN [Concomitant]
     Active Substance: AMOXICILLIN\CLAVULANATE POTASSIUM
     Indication: Product used for unknown indication
     Dosage: 875 MG + 125 MG
     Dates: start: 202408
  12. PRAVASTATIN [Concomitant]
     Active Substance: PRAVASTATIN
     Indication: Product used for unknown indication
     Dosage: 1 TABLET?FORM STRENGTH: 40 MILLIGRAM?FREQUENCY: AT BEDTIME?START DATE: BEFORE DUODOPA
     Route: 048
  13. CYANOCOBALAMIN\FOLIC ACID\PYRIDOXINE HYDROCHLORIDE [Concomitant]
     Active Substance: CYANOCOBALAMIN\FOLIC ACID\PYRIDOXINE HYDROCHLORIDE
     Indication: Product used for unknown indication
     Dosage: FORM STRENGTH: 5 MILLIGRAM?FREQUENCY :1 TABLET ON SATURDAY AND SUNDAY?START DATE: BEFORE DUODOPA
     Route: 048
  14. CARVEDILOL [Concomitant]
     Active Substance: CARVEDILOL
     Indication: Product used for unknown indication
     Dosage: 1 TABLET?FORM STRENGTH: 6.25 MILLIGRAM?FREQUENCY: AT DINNER?START DATE BEFORE DUODOPA
     Route: 048

REACTIONS (13)
  - Cardio-respiratory arrest [Fatal]
  - Dysuria [Not Recovered/Not Resolved]
  - On and off phenomenon [Not Recovered/Not Resolved]
  - Dysphagia [Not Recovered/Not Resolved]
  - Fall [Not Recovered/Not Resolved]
  - Mobility decreased [Not Recovered/Not Resolved]
  - Auditory disorder [Not Recovered/Not Resolved]
  - Generalised tonic-clonic seizure [Recovered/Resolved]
  - Somnolence [Not Recovered/Not Resolved]
  - Gait inability [Not Recovered/Not Resolved]
  - Fatigue [Recovered/Resolved]
  - Cough [Not Recovered/Not Resolved]
  - Dehydration [Unknown]

NARRATIVE: CASE EVENT DATE: 20240801
